FAERS Safety Report 8189693-3 (Version None)
Quarter: 2012Q1

REPORT INFORMATION
  Report Type: 
  Country: None (occurrence: None)
  Receive Date: 20120307
  Receipt Date: 20120228
  Transmission Date: 20120608
  Serious: Yes (Hospitalization)
  Sender: FDA-Public Use
  Company Number: US-US-EMD SERONO, INC.-7115902

PATIENT
  Sex: Female

DRUGS (3)
  1. MOTRIN [Concomitant]
     Indication: PREMEDICATION
  2. REBIF [Suspect]
     Indication: MULTIPLE SCLEROSIS
     Route: 058
     Dates: start: 20120124
  3. REBIF [Suspect]
     Route: 058
     Dates: start: 20120223

REACTIONS (5)
  - NEUROFIBROMA [None]
  - DYSPHAGIA [None]
  - EYE DISORDER [None]
  - TONGUE PARALYSIS [None]
  - JOINT LOCK [None]
